FAERS Safety Report 5953677-3 (Version None)
Quarter: 2008Q4

REPORT INFORMATION
  Report Type: 
  Country: None (occurrence: None)
  Receive Date: 20081114
  Receipt Date: 20081030
  Transmission Date: 20090506
  Serious: Yes (Death)
  Sender: FDA-Public Use
  Company Number: TH-GENENTECH-228610

PATIENT
  Sex: Male
  Weight: 50.4 kg

DRUGS (13)
  1. RITUXIMAB [Suspect]
     Indication: B-CELL LYMPHOMA
     Dosage: 585 MG, UNK
     Route: 042
     Dates: start: 20060403, end: 20080807
  2. CYCLOPHOSPHAMIDE [Suspect]
     Indication: B-CELL LYMPHOMA
     Dosage: 1170 MG, UNK
     Route: 042
     Dates: start: 20060403, end: 20080807
  3. VINCRISTINE [Suspect]
     Indication: B-CELL LYMPHOMA
     Dosage: 2 MG, UNK
     Route: 042
     Dates: start: 20060403, end: 20080807
  4. DOXORUBICIN HCL [Suspect]
     Indication: B-CELL LYMPHOMA
     Dosage: 70 MG, UNK
     Route: 042
     Dates: start: 20060403, end: 20080807
  5. PREDNISOLONE [Suspect]
     Indication: B-CELL LYMPHOMA
     Dosage: 100 MG, UNK
     Route: 048
     Dates: start: 20060403, end: 20080807
  6. FE FUMARATE [Concomitant]
     Indication: ANAEMIA
     Dosage: 200 MG, UNK
  7. VIT B2 [Concomitant]
     Indication: ANAEMIA
  8. VITAMIN B [Concomitant]
     Indication: ANAEMIA
     Dosage: 2 MG, UNK
  9. VITAMIN B-12 [Concomitant]
     Indication: ANAEMIA
     Dosage: 5 A?G, UNK
  10. ASCORBIC ACID [Concomitant]
     Indication: ANAEMIA
     Dosage: 20 MG, UNK
  11. NIACIN [Concomitant]
     Indication: ANAEMIA
     Dosage: 10 MG, UNK
  12. FOLIC ACID [Concomitant]
     Indication: ANAEMIA
     Dosage: 100 A?G, UNK
  13. CALCIUM PHOSPHATE, TRIBASIC [Concomitant]
     Indication: ANAEMIA
     Dosage: 100 MG, TID
     Route: 048

REACTIONS (1)
  - PNEUMONIA [None]
